FAERS Safety Report 15915064 (Version 1)
Quarter: 2019Q1

REPORT INFORMATION
  Report Type: Spontaneous
  Country: US (occurrence: US)
  Receive Date: 20190204
  Receipt Date: 20190204
  Transmission Date: 20190417
  Serious: No
  Sender: FDA-Public Use
  Company Number: US-ABBVIE-18K-163-2541381-00

PATIENT
  Age: 19 Year
  Sex: Male

DRUGS (3)
  1. LIALDA [Suspect]
     Active Substance: MESALAMINE
     Route: 065
     Dates: start: 201805
  2. HUMIRA [Suspect]
     Active Substance: ADALIMUMAB
     Indication: CROHN^S DISEASE
     Route: 058
     Dates: start: 201706, end: 201709
  3. LIALDA [Suspect]
     Active Substance: MESALAMINE
     Indication: CROHN^S DISEASE
     Route: 065
     Dates: start: 201801, end: 201805

REACTIONS (13)
  - Drug hypersensitivity [Unknown]
  - Abdominal pain [Recovered/Resolved]
  - Decreased appetite [Recovered/Resolved]
  - Anxiety [Unknown]
  - Abdominal pain upper [Unknown]
  - Weight decreased [Unknown]
  - Dermatitis allergic [Unknown]
  - Frequent bowel movements [Recovered/Resolved]
  - Colitis [Unknown]
  - Drug effect decreased [Unknown]
  - Defaecation urgency [Unknown]
  - Haematochezia [Recovered/Resolved]
  - Arthritis [Unknown]

NARRATIVE: CASE EVENT DATE: 2018
